FAERS Safety Report 17239100 (Version 2)
Quarter: 2021Q1

REPORT INFORMATION
  Report Type: Spontaneous
  Country: US (occurrence: US)
  Receive Date: 20200106
  Receipt Date: 20210106
  Transmission Date: 20210419
  Serious: No
  Sender: FDA-Public Use
  Company Number: US-ABBVIE-19K-163-2837634-00

PATIENT
  Sex: Female
  Weight: 76.73 kg

DRUGS (9)
  1. BETAPACE [Concomitant]
     Active Substance: SOTALOL HYDROCHLORIDE
     Indication: ATRIAL FIBRILLATION
     Dosage: IN THE MORNING
  2. ELIQUIS [Concomitant]
     Active Substance: APIXABAN
     Indication: ANTICOAGULANT THERAPY
  3. VENCLEXTA [Suspect]
     Active Substance: VENETOCLAX
     Indication: PLASMA CELL MYELOMA
     Dosage: FOR 30 DAYS
     Route: 048
     Dates: start: 201903, end: 20190902
  4. BETAPACE [Concomitant]
     Active Substance: SOTALOL HYDROCHLORIDE
     Dosage: IN THE EVENING
  5. LOPERAMIDE [Concomitant]
     Active Substance: LOPERAMIDE
     Indication: DIARRHOEA
  6. ELIQUIS [Concomitant]
     Active Substance: APIXABAN
     Indication: HIATUS HERNIA
     Dosage: IN THE MORNING AND AT NIGHT
  7. VENCLEXTA [Suspect]
     Active Substance: VENETOCLAX
     Route: 048
     Dates: start: 20190902
  8. DEXAMETHASON [Concomitant]
     Active Substance: DEXAMETHASONE
     Indication: PRODUCT USED FOR UNKNOWN INDICATION
     Dosage: EVERY THURSDAY
  9. OMEPRAZOLE. [Concomitant]
     Active Substance: OMEPRAZOLE
     Indication: HIATUS HERNIA

REACTIONS (5)
  - Intentional product use issue [Unknown]
  - Inhibitory drug interaction [Unknown]
  - Neoplasm [Unknown]
  - Drug-disease interaction [Unknown]
  - Diarrhoea [Recovered/Resolved]
